FAERS Safety Report 6492394-0 (Version None)
Quarter: 2009Q4

REPORT INFORMATION
  Report Type: 
  Country: None (occurrence: None)
  Receive Date: 20091208
  Receipt Date: 20091124
  Transmission Date: 20100525
  Serious: Yes (Hospitalization)
  Sender: FDA-Public Use
  Company Number: DE-1171696

PATIENT
  Age: 83 Year
  Sex: Female

DRUGS (1)
  1. FLUORESCEIN SODIUM [Suspect]
     Indication: RETINAL VEIN OCCLUSION
     Dosage: 5 ML (1.6 ML/SEC), INTRAVENOUS BLOUS
     Route: 040
     Dates: start: 20090622, end: 20090622

REACTIONS (18)
  - ABDOMINAL PAIN UPPER [None]
  - ABDOMINAL RIGIDITY [None]
  - ALPHA 2 GLOBULIN INCREASED [None]
  - BLOOD CHOLESTEROL INCREASED [None]
  - BLOOD GLUCOSE INCREASED [None]
  - BLOOD THYROID STIMULATING HORMONE DECREASED [None]
  - CONTUSION [None]
  - HAEMATOMA [None]
  - HAEMOGLOBIN DECREASED [None]
  - HEPATIC STEATOSIS [None]
  - HYPERSENSITIVITY [None]
  - IDIOPATHIC THROMBOCYTOPENIC PURPURA [None]
  - INTERNATIONAL NORMALISED RATIO INCREASED [None]
  - LOSS OF CONSCIOUSNESS [None]
  - MEAN CELL HAEMOGLOBIN CONCENTRATION DECREASED [None]
  - MUSCLE SPASMS [None]
  - TONGUE BITING [None]
  - TONGUE INJURY [None]
